FAERS Safety Report 20069420 (Version 1)
Quarter: 2021Q4

REPORT INFORMATION
  Report Type: Spontaneous
  Country: US (occurrence: None)
  Receive Date: 20211113
  Receipt Date: 20211113
  Transmission Date: 20220303
  Serious: Yes (Death, Life-Threatening, Hospitalization, Disabling)
  Sender: FDA-Public Use
  Company Number: None

PATIENT
  Age: 53 Year
  Sex: Male
  Weight: 80.55 kg

DRUGS (13)
  1. BELATACEPT [Suspect]
     Active Substance: BELATACEPT
     Indication: Lung transplant
     Dosage: OTHER FREQUENCY : Q14D X6, THEN QMO;?
     Route: 040
  2. ATOVAQUONE [Concomitant]
     Active Substance: ATOVAQUONE
  3. AZITHROMYCIN [Concomitant]
     Active Substance: AZITHROMYCIN
  4. CARVEDILOL [Concomitant]
     Active Substance: CARVEDILOL
  5. FUROSEMIDE [Concomitant]
     Active Substance: FUROSEMIDE
  6. GABAPENTIN [Concomitant]
     Active Substance: GABAPENTIN
  7. INSULIN ASPART [Concomitant]
     Active Substance: INSULIN ASPART
  8. INSULIN GLARGINE [Concomitant]
     Active Substance: INSULIN GLARGINE
  9. LANSOPRAZOLE [Concomitant]
     Active Substance: LANSOPRAZOLE
  10. MYCOPHENOLIC ACID [Concomitant]
     Active Substance: MYCOPHENOLIC ACID
  11. PREDNISONE [Concomitant]
     Active Substance: PREDNISONE
  12. SILDENAFIL [Concomitant]
     Active Substance: SILDENAFIL
  13. VALGANCICLOVIR [Concomitant]
     Active Substance: VALGANCICLOVIR

REACTIONS (5)
  - Chronic kidney disease [None]
  - Dialysis [None]
  - Acute respiratory failure [None]
  - Organising pneumonia [None]
  - Transplant rejection [None]

NARRATIVE: CASE EVENT DATE: 20211117
